FAERS Safety Report 4273644-8 (Version None)
Quarter: 2004Q1

REPORT INFORMATION
  Report Type: 
  Country: None (occurrence: None)
  Receive Date: 20040119
  Receipt Date: 20031028
  Transmission Date: 20041129
  Serious: Yes (Death, Life-Threatening)
  Sender: FDA-Public Use
  Company Number: WAES 0310USA03131

PATIENT
  Age: 62 Year
  Sex: Female

DRUGS (12)
  1. VICODIN [Concomitant]
  2. ROCALTROL [Concomitant]
  3. NEPHRO-CALCI [Concomitant]
  4. CANCIDAS [Suspect]
     Indication: MENINGITIS
     Route: 042
     Dates: start: 20031021
  5. MAXIPIME [Concomitant]
  6. CIPRO [Concomitant]
  7. CARDIZEM [Concomitant]
  8. DEPAKOTE [Concomitant]
  9. PREVACID [Concomitant]
  10. LOPRESSOR [Concomitant]
  11. ADALAT [Concomitant]
  12. ZOLOFT [Concomitant]

REACTIONS (3)
  - DEATH [None]
  - GENERALISED OEDEMA [None]
  - SWELLING FACE [None]
